FAERS Safety Report 7864115-8 (Version None)
Quarter: 2011Q4

REPORT INFORMATION
  Report Type: 
  Country: None (occurrence: None)
  Receive Date: 20111028
  Receipt Date: 20111018
  Transmission Date: 20120403
  Serious: Yes (Life-Threatening, Hospitalization)
  Sender: FDA-Public Use
  Company Number: NL-JNJFOC-20111008221

PATIENT
  Sex: Female
  Weight: 50 kg

DRUGS (2)
  1. REMICADE [Suspect]
     Indication: CROHN'S DISEASE
     Route: 042
     Dates: start: 20110901
  2. REMICADE [Suspect]
     Route: 042
     Dates: start: 20091201

REACTIONS (1)
  - OROPHARYNGEAL CANCER STAGE UNSPECIFIED [None]
